FAERS Safety Report 8101727-0 (Version None)
Quarter: 2012Q1

REPORT INFORMATION
  Report Type: 
  Country: None (occurrence: None)
  Receive Date: 20120131
  Receipt Date: 20120117
  Transmission Date: 20120608
  Serious: Yes (Other)
  Sender: FDA-Public Use
  Company Number: PHHY2011AU17520

PATIENT
  Sex: Female

DRUGS (10)
  1. GLEEVEC [Suspect]
     Indication: CHRONIC MYELOID LEUKAEMIA
     Dosage: 400 MG
     Route: 048
     Dates: start: 20110128, end: 20111101
  2. SULFASALAZINE [Concomitant]
     Dosage: UNK
  3. GLEEVEC [Suspect]
     Dosage: UNK
     Dates: start: 20120101
  4. FENOFIBRATE [Concomitant]
     Dosage: UNK
  5. PANTOPRAZOLE [Concomitant]
     Dosage: UNK
  6. SIMVASTATIN [Concomitant]
     Dosage: UNK
  7. ALLOPURINOL [Concomitant]
     Dosage: UNK
  8. ASPIRIN [Concomitant]
     Dosage: UNK
  9. CHOLESTEROL [Concomitant]
     Dosage: UNK
  10. LEVOTHYROXINE SODIUM [Concomitant]
     Dosage: UNK

REACTIONS (5)
  - DIZZINESS [None]
  - TREMOR [None]
  - COLITIS ULCERATIVE [None]
  - HEADACHE [None]
  - NAUSEA [None]
